FAERS Safety Report 6348574-8 (Version None)
Quarter: 2009Q3

REPORT INFORMATION
  Report Type: 
  Country: None (occurrence: None)
  Receive Date: 20090911
  Receipt Date: 20071011
  Transmission Date: 20100115
  Serious: Yes (Other)
  Sender: FDA-Public Use
  Company Number: US-ASTRAZENECA-2007UW07743

PATIENT
  Age: 53 Year
  Sex: Female
  Weight: 94.3 kg

DRUGS (13)
  1. SEROQUEL [Suspect]
     Indication: HALLUCINATION
     Route: 048
     Dates: start: 20030101
  2. SEROQUEL [Suspect]
     Route: 048
     Dates: start: 20040408, end: 20040624
  3. ABILIFY [Concomitant]
  4. DEPAKOTE [Concomitant]
     Dosage: 500MG-2000MG
     Dates: start: 20051215
  5. PROTONIX [Concomitant]
     Dates: start: 20051215
  6. LORATADINE [Concomitant]
     Dates: start: 20051215
  7. LEVOXYL [Concomitant]
     Dosage: 90MCG-125MCG
     Dates: start: 20051215
  8. AMBIEN [Concomitant]
     Dosage: 5MG-10MG
     Dates: start: 20051215
  9. CRESTOR [Concomitant]
     Dates: start: 20060620
  10. COGENTIN [Concomitant]
     Dates: start: 20060815
  11. LASIX [Concomitant]
     Dates: start: 20060724
  12. LOPRESSOR [Concomitant]
     Dates: start: 20060724
  13. TRAZODONE HYDROCHLORIDE [Concomitant]
     Dates: start: 20000212

REACTIONS (6)
  - DIABETES INSIPIDUS [None]
  - DIABETES MELLITUS [None]
  - DIABETIC COMA [None]
  - DIABETIC NEPHROPATHY [None]
  - MALAISE [None]
  - NEPHROGENIC DIABETES INSIPIDUS [None]
